FAERS Safety Report 5601119-X (Version None)
Quarter: 2008Q1

REPORT INFORMATION
  Report Type: 
  Country: None (occurrence: None)
  Receive Date: 20080124
  Receipt Date: 20080107
  Transmission Date: 20080703
  Serious: Yes (Other)
  Sender: FDA-Public Use
  Company Number: US-ASTRAZENECA-2008UW00436

PATIENT
  Sex: Female

DRUGS (2)
  1. ARIMIDEX [Suspect]
     Indication: BREAST CANCER
     Route: 048
     Dates: start: 20070101
  2. RADIATION THERAPY [Concomitant]
     Indication: BREAST CANCER

REACTIONS (2)
  - DISEASE RECURRENCE [None]
  - INTERSTITIAL LUNG DISEASE [None]
